FAERS Safety Report 18518515 (Version 1)
Quarter: 2020Q4

REPORT INFORMATION
  Report Type: Report from Study
  Country: GT (occurrence: GT)
  Receive Date: 20201118
  Receipt Date: 20201118
  Transmission Date: 20210114
  Serious: Yes (Other)
  Sender: FDA-Public Use
  Company Number: NVSC2020GT304396

PATIENT
  Age: 77 Year
  Sex: Female

DRUGS (1)
  1. NITRODERM [Suspect]
     Active Substance: NITROGLYCERIN
     Indication: PRODUCT USED FOR UNKNOWN INDICATION
     Dosage: 5 PATCHES
     Route: 062

REACTIONS (2)
  - Hypertension [Unknown]
  - Infarction [Unknown]
